FAERS Safety Report 22741571 (Version 9)
Quarter: 2024Q2

REPORT INFORMATION
  Report Type: Report from Study
  Country: CA (occurrence: CA)
  Receive Date: 20230724
  Receipt Date: 20240419
  Transmission Date: 20240716
  Serious: Yes (Other)
  Sender: FDA-Public Use
  Company Number: CA-CELLTRION INC.-2021CA019449

PATIENT

DRUGS (27)
  1. INFLIXIMAB [Suspect]
     Active Substance: INFLIXIMAB
     Indication: Rheumatoid arthritis
     Dosage: 120 MILLIGRAM PER MILLILITRE, EVERY 2 WEEKS
     Route: 058
     Dates: start: 20210902
  2. INFLIXIMAB [Suspect]
     Active Substance: INFLIXIMAB
     Dosage: 120 MILLIGRAM PER MILLILITRE, EVERY 2 WEEKS
     Route: 058
     Dates: start: 20211125
  3. INFLIXIMAB [Suspect]
     Active Substance: INFLIXIMAB
     Dosage: DIRECT AUTO-INJECTOR, DOSE FREQUENCY: WEEKS
     Route: 058
     Dates: start: 20211125
  4. INFLIXIMAB [Suspect]
     Active Substance: INFLIXIMAB
     Dosage: UNK
  5. INFLIXIMAB [Suspect]
     Active Substance: INFLIXIMAB
     Dosage: MOST RECENT
     Dates: start: 20211223
  6. INFLIXIMAB [Suspect]
     Active Substance: INFLIXIMAB
     Dosage: 120 MILLIGRAM PER MILLILITRE, EVERY 2 WEEKS (NEXT INJECTION IS DUE TOMORROW MAY 19TH 2022)
     Route: 058
     Dates: start: 20220519
  7. INFLIXIMAB [Suspect]
     Active Substance: INFLIXIMAB
     Dosage: MOST RECENT
     Route: 058
     Dates: start: 20220714
  8. INFLIXIMAB [Suspect]
     Active Substance: INFLIXIMAB
     Dosage: 120 MILLIGRAM PER MILLILITRE, DIRECT AUTO-INJECTOR, WEEKS/WEEKS-2 WEEKS
     Route: 058
     Dates: start: 20211125
  9. INFLIXIMAB [Suspect]
     Active Substance: INFLIXIMAB
     Dosage: MOST RECENT
     Route: 058
     Dates: start: 20230210
  10. INFLIXIMAB [Suspect]
     Active Substance: INFLIXIMAB
     Dosage: 120 MILLIGRAM, WEEKS/EVERY 2 WEEKS (DIRECT AUTO-INJECTOR)
     Route: 058
     Dates: start: 20230323
  11. INFLIXIMAB [Suspect]
     Active Substance: INFLIXIMAB
     Dosage: 120 MILLIGRAM PER MILLILITRE, EVERY 2 WEEKS
     Route: 058
     Dates: start: 20230713
  12. METHOTREXATE [Concomitant]
     Active Substance: METHOTREXATE
     Dosage: UNK
     Dates: start: 201711
  13. LEFLUNOMIDE [Concomitant]
     Active Substance: LEFLUNOMIDE
     Dosage: UNK
     Dates: start: 201806
  14. LEFLUNOMIDE [Concomitant]
     Active Substance: LEFLUNOMIDE
     Dosage: UNK
     Dates: start: 20220926
  15. COUMADIN [Concomitant]
     Active Substance: WARFARIN SODIUM
     Dosage: UNK
  16. COUMADIN [Concomitant]
     Active Substance: WARFARIN SODIUM
     Dosage: UNK
  17. PREDNISONE [Concomitant]
     Active Substance: PREDNISONE
     Dosage: UNK
  18. IRBESARTAN [Concomitant]
     Active Substance: IRBESARTAN
     Dosage: UNK
  19. FOLIC ACID [Concomitant]
     Active Substance: FOLIC ACID
     Dosage: UNK
  20. CALCIUM [Concomitant]
     Active Substance: CALCIUM
     Dosage: UNK
  21. PANTOPRAZOLE [Concomitant]
     Active Substance: PANTOPRAZOLE
     Dosage: UNK
  22. PLAQUENIL [Concomitant]
     Active Substance: HYDROXYCHLOROQUINE SULFATE
     Dosage: UNK
     Dates: start: 201711
  23. SULFASALAZINE [Concomitant]
     Active Substance: SULFASALAZINE
     Dosage: UNK
     Dates: start: 20210603
  24. HYDROXYCHLOROQUINE [Concomitant]
     Active Substance: HYDROXYCHLOROQUINE
  25. ALBUTEROL [Concomitant]
     Active Substance: ALBUTEROL
  26. ARNUITY ELLIPTA [Concomitant]
     Active Substance: FLUTICASONE FUROATE
  27. SHINGRIX [Concomitant]
     Active Substance: RECOMBINANT VARICELLA ZOSTER VIRUS (VZV) GLYCOPROTEIN E
     Dosage: UNK
     Dates: start: 20220413

REACTIONS (43)
  - Dysphonia [Recovered/Resolved]
  - Foot deformity [Not Recovered/Not Resolved]
  - Pneumothorax [Unknown]
  - Rheumatoid arthritis [Recovered/Resolved]
  - Rib fracture [Unknown]
  - Chondropathy [Unknown]
  - Bronchitis [Recovering/Resolving]
  - Chills [Unknown]
  - Loss of consciousness [Unknown]
  - Arthropod sting [Recovering/Resolving]
  - International normalised ratio increased [Unknown]
  - Musculoskeletal chest pain [Unknown]
  - Productive cough [Recovering/Resolving]
  - Rhinorrhoea [Recovered/Resolved]
  - Cough [Recovered/Resolved]
  - Dizziness [Unknown]
  - Dry skin [Not Recovered/Not Resolved]
  - Eczema [Unknown]
  - Epistaxis [Unknown]
  - Erythema [Unknown]
  - Erythema [Unknown]
  - Fatigue [Unknown]
  - Headache [Unknown]
  - Hypoaesthesia oral [Recovered/Resolved]
  - Illness [Recovered/Resolved]
  - Inflammation [Unknown]
  - Injection site pain [Recovered/Resolved]
  - Joint swelling [Unknown]
  - Nausea [Unknown]
  - Oropharyngeal pain [Recovered/Resolved]
  - Pain [Unknown]
  - Pain in extremity [Unknown]
  - Peripheral swelling [Not Recovered/Not Resolved]
  - Pruritus [Not Recovered/Not Resolved]
  - Pruritus [Unknown]
  - Purulent discharge [Recovered/Resolved]
  - Pyrexia [Unknown]
  - Rash [Not Recovered/Not Resolved]
  - Rash [Unknown]
  - Wound [Recovering/Resolving]
  - Wound infection [Recovered/Resolved]
  - Wound infection [Unknown]
  - Intentional dose omission [Unknown]

NARRATIVE: CASE EVENT DATE: 20211125
